FAERS Safety Report 9230359 (Version 1)
Quarter: 2013Q2

REPORT INFORMATION
  Report Type: Report from Study
  Country: AU (occurrence: AU)
  Receive Date: 20130415
  Receipt Date: 20130415
  Transmission Date: 20140414
  Serious: Yes (Death)
  Sender: FDA-Public Use
  Company Number: PHHY2013AU035645

PATIENT
  Age: 38 Year
  Sex: Male

DRUGS (2)
  1. CLOZAPINE [Suspect]
     Dosage: UNK
  2. CAFFEINE [Suspect]
     Dosage: UNK

REACTIONS (1)
  - Antipsychotic drug level increased [Fatal]
